FAERS Safety Report 10414294 (Version 1)
Quarter: 2014Q3

REPORT INFORMATION
  Report Type: Report from Study
  Country: US (occurrence: US)
  Receive Date: 20140828
  Receipt Date: 20140828
  Transmission Date: 20150326
  Serious: Yes (Other)
  Sender: FDA-Public Use
  Company Number: US-ROCHE-1453813

PATIENT
  Age: 2 Year
  Sex: Female
  Weight: 11.6 kg

DRUGS (4)
  1. LANSOPRAZOLE. [Concomitant]
     Active Substance: LANSOPRAZOLE
     Dosage: STRENGTH - 3.0 MG/ML
     Route: 065
  2. QVAR [Concomitant]
     Active Substance: BECLOMETHASONE DIPROPIONATE
     Dosage: STRENGTH - 40 MCG/ACT?DOSE - 2 PUFFS
     Route: 065
  3. NUTROPIN AQ [Suspect]
     Active Substance: SOMATROPIN
     Indication: TURNER^S SYNDROME
     Route: 058
     Dates: start: 201305, end: 201403
  4. NUTROPIN AQ [Suspect]
     Active Substance: SOMATROPIN
     Route: 058
     Dates: start: 20140320, end: 20140707

REACTIONS (4)
  - Catheter site cellulitis [Unknown]
  - Strabismus [Unknown]
  - Rash [Recovered/Resolved]
  - Snoring [Unknown]

NARRATIVE: CASE EVENT DATE: 201312
